FAERS Safety Report 4837805-9 (Version None)
Quarter: 2005Q4

REPORT INFORMATION
  Report Type: 
  Country: None (occurrence: None)
  Receive Date: 20051024
  Receipt Date: 20050713
  Transmission Date: 20060501
  Serious: No
  Sender: FDA-Public Use
  Company Number: 215622

PATIENT
  Age: 8 Year
  Sex: Female
  Weight: 24.9 kg

DRUGS (6)
  1. XOLAIR [Suspect]
     Indication: ASTHMA
     Dosage: 150 MG, 1/MONTH, SUBCUTANEOUS
     Route: 058
     Dates: start: 20031217, end: 20050502
  2. SINGULAIR [Concomitant]
  3. NASONEX [Concomitant]
  4. PULMICORT [Concomitant]
  5. ZYRTEC [Concomitant]
  6. ALBUTEROL (ALBUTEROL, ALBUTEROL SULFATE) [Concomitant]

REACTIONS (1)
  - DERMATITIS [None]
